FAERS Safety Report 8810825 (Version 1)
Quarter: 2012Q4

REPORT INFORMATION
  Report Type: Spontaneous
  Country: US (occurrence: None)
  Receive Date: 20120924
  Receipt Date: 20120924
  Transmission Date: 20130627
  Serious: Yes (Other)
  Sender: FDA-Public Use
  Company Number: None

PATIENT
  Age: 33 Year
  Sex: Female

DRUGS (1)
  1. CLINDAMYCIN HCL [Suspect]
     Dosage: 300 mg 3 times daily po
     Route: 048

REACTIONS (6)
  - Heart rate increased [None]
  - Heart rate increased [None]
  - Palpitations [None]
  - Chest pain [None]
  - Blood pressure increased [None]
  - Hypersensitivity [None]
